FAERS Safety Report 10265266 (Version 1)
Quarter: 2014Q2

REPORT INFORMATION
  Report Type: Spontaneous
  Country: US (occurrence: None)
  Receive Date: 20140625
  Receipt Date: 20140625
  Transmission Date: 20141212
  Serious: Yes (Hospitalization)
  Sender: FDA-Public Use
  Company Number: None

PATIENT
  Age: 67 Year
  Sex: Male
  Weight: 82 kg

DRUGS (29)
  1. SOFOSBUVIR [Suspect]
     Indication: HEPATITIS C
     Route: 048
     Dates: start: 20140122, end: 20140522
  2. RIBAVIRIN [Suspect]
     Indication: HEPATITIS C
     Dosage: 1000 MG 600 QAM 400 QAM ORAL
     Route: 048
     Dates: start: 20140122, end: 20140522
  3. POTASSIUM CHLORIDE [Concomitant]
  4. SPIRONOLACTONE [Concomitant]
  5. TEMAZEPAM [Concomitant]
  6. LASIX [Concomitant]
  7. SENNA [Concomitant]
  8. LACTULOSE [Concomitant]
  9. RIFAXIMIN [Concomitant]
  10. SYNTHROID [Concomitant]
  11. VYVANSE [Concomitant]
  12. VISINE TEARS [Concomitant]
  13. OMEPRAZOLE [Concomitant]
  14. XANAX [Concomitant]
  15. FERROUS SULFATE [Concomitant]
  16. DOCUSATE SODIUM [Concomitant]
  17. GLUCAGIN [Concomitant]
  18. GLUCOSE [Concomitant]
  19. INSULIN LISPRO [Concomitant]
  20. LABETALOL [Concomitant]
  21. ONDANSETRAON [Concomitant]
  22. MULITVITAMIN [Concomitant]
  23. PROTONIX [Concomitant]
  24. ZINC SULFATE [Concomitant]
  25. SODIUM CHLORIDE [Concomitant]
  26. DEXTROSE IN WATER [Concomitant]
  27. STERIOD [Concomitant]
  28. JANUVIA [Concomitant]
  29. INSULIN GLARGINE [Concomitant]

REACTIONS (2)
  - Hepatic encephalopathy [None]
  - Type 2 diabetes mellitus [None]
